FAERS Safety Report 8279440-9 (Version None)
Quarter: 2012Q2

REPORT INFORMATION
  Report Type: 
  Country: None (occurrence: None)
  Receive Date: 20120412
  Receipt Date: 20120130
  Transmission Date: 20120825
  Serious: No
  Sender: FDA-Public Use
  Company Number: US-ASTRAZENECA-2012SE06171

PATIENT
  Sex: Female

DRUGS (2)
  1. NEXIUM [Suspect]
     Indication: GASTROOESOPHAGEAL REFLUX DISEASE
     Route: 048
  2. NEXIUM [Suspect]
     Indication: OESOPHAGITIS
     Route: 048

REACTIONS (8)
  - BONE PAIN [None]
  - DRUG EFFECT INCREASED [None]
  - CIRCUMSTANCE OR INFORMATION CAPABLE OF LEADING TO MEDICATION ERROR [None]
  - INSOMNIA [None]
  - ADVERSE DRUG REACTION [None]
  - ASTHENIA [None]
  - ABNORMAL DREAMS [None]
  - INAPPROPRIATE SCHEDULE OF DRUG ADMINISTRATION [None]
